FAERS Safety Report 9774374 (Version 1)
Quarter: 2013Q4

REPORT INFORMATION
  Report Type: Spontaneous
  Country: MX (occurrence: MX)
  Receive Date: 20131220
  Receipt Date: 20131220
  Transmission Date: 20140711
  Serious: Yes (Other)
  Sender: FDA-Public Use
  Company Number: MX-BAYER-2013-153468

PATIENT
  Sex: Female

DRUGS (1)
  1. YASMIN [Suspect]
     Dosage: UNK
     Route: 048

REACTIONS (6)
  - Asphyxia [Unknown]
  - Headache [Unknown]
  - Muscle fatigue [Unknown]
  - Tachycardia [Unknown]
  - Hypotension [Unknown]
  - Blood cholesterol increased [Unknown]
